FAERS Safety Report 6896877-0 (Version None)
Quarter: 2010Q3

REPORT INFORMATION
  Report Type: 
  Country: None (occurrence: None)
  Receive Date: 20100802
  Receipt Date: 20070211
  Transmission Date: 20110219
  Serious: No
  Sender: FDA-Public Use
  Company Number: US-PFIZER INC-2007011357

PATIENT
  Sex: Male
  Weight: 77.1 kg

DRUGS (2)
  1. LYRICA [Suspect]
     Indication: NEURALGIA
     Dates: start: 20060901, end: 20070101
  2. ANTIHYPERTENSIVES [Concomitant]
     Indication: BLOOD PRESSURE
     Dates: start: 20050101

REACTIONS (2)
  - VISION BLURRED [None]
  - VISUAL IMPAIRMENT [None]
